FAERS Safety Report 6076875-X (Version None)
Quarter: 2009Q1

REPORT INFORMATION
  Report Type: 
  Country: None (occurrence: None)
  Receive Date: 20090213
  Receipt Date: 20090204
  Transmission Date: 20090719
  Serious: Yes (Other)
  Sender: FDA-Public Use
  Company Number: US-JNJCH-2009003329

PATIENT
  Age: 53 Year
  Sex: Female
  Weight: 89.8 kg

DRUGS (1)
  1. LISTERINE VANILLA MINT [Suspect]
     Indication: DENTAL DISORDER PROPHYLAXIS
     Dosage: TEXT:^MOUTHFUL ^ THREE TIMES DAILY
     Route: 048

REACTIONS (3)
  - ABSCESS ORAL [None]
  - INCORRECT DOSE ADMINISTERED [None]
  - ORAL MUCOSAL EXFOLIATION [None]
